FAERS Safety Report 5533267-7 (Version None)
Quarter: 2007Q4

REPORT INFORMATION
  Report Type: 
  Country: None (occurrence: None)
  Receive Date: 20071204
  Receipt Date: 20071126
  Transmission Date: 20080405
  Serious: Yes (Other)
  Sender: FDA-Public Use
  Company Number: B0496653A

PATIENT
  Sex: Female

DRUGS (3)
  1. AVANDIA [Suspect]
     Indication: DRUG USE FOR UNKNOWN INDICATION
     Dosage: 4MG PER DAY
     Dates: start: 20070810, end: 20071005
  2. CITALOPRAM HYDROBROMIDE [Concomitant]
     Dosage: 10MG PER DAY
  3. LEVOTHYROXINE SODIUM [Concomitant]
     Dosage: 100MCG PER DAY

REACTIONS (1)
  - PANCYTOPENIA [None]
